FAERS Safety Report 16425817 (Version 1)
Quarter: 2019Q2

REPORT INFORMATION
  Report Type: Spontaneous
  Country: US (occurrence: US)
  Receive Date: 20190613
  Receipt Date: 20190613
  Transmission Date: 20190711
  Serious: No
  Sender: FDA-Public Use
  Company Number: US-STRIDES ARCOLAB LIMITED-2019SP003177

PATIENT
  Age: 65 Year
  Sex: Male

DRUGS (1)
  1. METRONIDAZOLE. [Suspect]
     Active Substance: METRONIDAZOLE
     Indication: CLOSTRIDIUM DIFFICILE COLITIS
     Dosage: TWO 14 DAYS COURSES
     Route: 065

REACTIONS (3)
  - Tongue discolouration [Recovered/Resolved]
  - Oropharyngeal plaque [Recovered/Resolved]
  - Trichoglossia [Recovered/Resolved]
